FAERS Safety Report 14383803 (Version 3)
Quarter: 2019Q3

REPORT INFORMATION
  Report Type: Spontaneous
  Country: US (occurrence: US)
  Receive Date: 20180115
  Receipt Date: 20190913
  Transmission Date: 20191004
  Serious: Yes (Hospitalization, Other)
  Sender: FDA-Public Use
  Company Number: US-BRISTOL-MYERS SQUIBB COMPANY-BMS-2018-003192

PATIENT
  Age: 75 Year
  Sex: Male
  Weight: 90 kg

DRUGS (1)
  1. OPDIVO [Suspect]
     Active Substance: NIVOLUMAB
     Indication: LUNG NEOPLASM MALIGNANT
     Dosage: 240 MILLIGRAM, Q2WK
     Route: 042
     Dates: start: 20170926, end: 201907

REACTIONS (2)
  - Pain [Unknown]
  - Peripheral ischaemia [Unknown]

NARRATIVE: CASE EVENT DATE: 201907
